FAERS Safety Report 14143288 (Version 1)
Quarter: 2017Q4

REPORT INFORMATION
  Report Type: Spontaneous
  Country: US (occurrence: US)
  Receive Date: 20171030
  Receipt Date: 20171030
  Transmission Date: 20180321
  Serious: Yes (Hospitalization, Other)
  Sender: FDA-Public Use
  Company Number: US-PFIZER INC-2017465115

PATIENT
  Age: 72 Year
  Sex: Female
  Weight: 70.6 kg

DRUGS (7)
  1. ELIQUIS [Concomitant]
     Active Substance: APIXABAN
     Indication: ANTICOAGULANT THERAPY
     Dosage: 5 MG, 2X/DAY
  2. ARMOUR THYROID [Concomitant]
     Active Substance: THYROID, PORCINE
     Indication: THYROID DISORDER
     Dosage: 60 MG, 1X/DAY
  3. METOPROLOL. [Concomitant]
     Active Substance: METOPROLOL
     Indication: HEART RATE ABNORMAL
     Dosage: 50 MG, 2X/DAY
  4. METOPROLOL. [Concomitant]
     Active Substance: METOPROLOL
     Dosage: 50 MG, 4X/DAY
     Dates: start: 20171024
  5. TIKOSYN [Suspect]
     Active Substance: DOFETILIDE
     Dosage: 375 UG, 2X/DAY
     Route: 048
     Dates: start: 20171024
  6. TIKOSYN [Suspect]
     Active Substance: DOFETILIDE
     Indication: ATRIAL FIBRILLATION
     Dosage: 250 UG, 2X/DAY
     Route: 048
     Dates: start: 20170313
  7. ASPIRIN. [Concomitant]
     Active Substance: ASPIRIN
     Dosage: 81 MG, DAILY

REACTIONS (8)
  - Sinus arrhythmia [Recovered/Resolved]
  - Palpitations [Unknown]
  - Hypertension [Unknown]
  - Dizziness [Unknown]
  - Electrocardiogram QT prolonged [Not Recovered/Not Resolved]
  - Chest discomfort [Unknown]
  - Drug ineffective [Not Recovered/Not Resolved]
  - Dyslipidaemia [Unknown]

NARRATIVE: CASE EVENT DATE: 201705
